FAERS Safety Report 11038667 (Version 2)
Quarter: 2015Q3

REPORT INFORMATION
  Report Type: Spontaneous
  Country: US (occurrence: US)
  Receive Date: 20150416
  Receipt Date: 20150702
  Transmission Date: 20151125
  Serious: Yes (Hospitalization)
  Sender: FDA-Public Use
  Company Number: US-ENDO PHARMACEUTICALS INC.-201504030

PATIENT
  Age: 58 Year
  Sex: Male
  Weight: 108.14 kg

DRUGS (1)
  1. STRIANT [Suspect]
     Active Substance: TESTOSTERONE
     Indication: ANDROGEN REPLACEMENT THERAPY
     Route: 002
     Dates: start: 20120401, end: 20130401

REACTIONS (5)
  - Myocardial infarction [Unknown]
  - Hypoxia [Unknown]
  - Cardiac failure congestive [Unknown]
  - Pulmonary hypertension [Unknown]
  - Generalised oedema [Unknown]

NARRATIVE: CASE EVENT DATE: 20130401
